FAERS Safety Report 23283404 (Version 2)
Quarter: 2024Q1

REPORT INFORMATION
  Report Type: Spontaneous
  Country: DE (occurrence: DE)
  Receive Date: 20231211
  Receipt Date: 20240119
  Transmission Date: 20240410
  Serious: Yes (Death, Hospitalization, Other)
  Sender: FDA-Public Use
  Company Number: DE-VERTEX PHARMACEUTICALS-2023-018361

PATIENT
  Sex: Male

DRUGS (15)
  1. ELEXACAFTOR\IVACAFTOR\TEZACAFTOR [Suspect]
     Active Substance: ELEXACAFTOR\IVACAFTOR\TEZACAFTOR
     Indication: Cystic fibrosis
     Dosage: 75 MG IVA/ 50 MG TEZA/ 100 MG ELEXA; STANDARD DOSING
     Route: 048
     Dates: start: 202003, end: 202104
  2. ELEXACAFTOR\IVACAFTOR\TEZACAFTOR [Suspect]
     Active Substance: ELEXACAFTOR\IVACAFTOR\TEZACAFTOR
     Dosage: TWICE A WEEK (TUE AND THUR); WITHOUT KALYDECO
     Route: 048
     Dates: start: 2022, end: 20220408
  3. KALYDECO [Suspect]
     Active Substance: IVACAFTOR
     Indication: Cystic fibrosis
     Dosage: STANDARD DOSE
     Route: 048
     Dates: start: 202003, end: 202104
  4. ITRACONAZOLE [Concomitant]
     Active Substance: ITRACONAZOLE
     Indication: Pseudomonas infection
     Dosage: 200 MILLIGRAM
  5. ITRACONAZOLE [Concomitant]
     Active Substance: ITRACONAZOLE
     Indication: Burkholderia cepacia complex infection
  6. ITRACONAZOLE [Concomitant]
     Active Substance: ITRACONAZOLE
     Indication: Staphylococcal infection
  7. ITRACONAZOLE [Concomitant]
     Active Substance: ITRACONAZOLE
     Indication: Candida infection
  8. PANCRELIPASE [Concomitant]
     Active Substance: PANCRELIPASE
     Dosage: 10,000
  9. URSODIOL [Concomitant]
     Active Substance: URSODIOL
     Dosage: 500 MILLIGRAM, BID
  10. RAMIPRIL [Concomitant]
     Active Substance: RAMIPRIL
     Dosage: 5 MILLIGRAM, QD
  11. MORPHINE [Concomitant]
     Active Substance: MORPHINE
     Dosage: 5 MILLIGRAM, PRN
  12. PANTOPRAZOLE [Concomitant]
     Active Substance: PANTOPRAZOLE
  13. SYMBICORT [Concomitant]
     Active Substance: BUDESONIDE\FORMOTEROL FUMARATE DIHYDRATE
     Dosage: 160-4.5 MCG; 1 IN AM; 1 IN PM
  14. DEOXYRIBONUCLEASE HUMAN [Concomitant]
  15. COLISTIN [Concomitant]
     Active Substance: COLISTIN

REACTIONS (6)
  - Extradural abscess [Unknown]
  - Sepsis [Fatal]
  - Coma [Fatal]
  - Burkholderia test positive [Fatal]
  - Diabetes mellitus [Unknown]
  - Obstructive airways disorder [Unknown]

NARRATIVE: CASE EVENT DATE: 20220320
